FAERS Safety Report 9941008 (Version 2)
Quarter: 2014Q1

REPORT INFORMATION
  Report Type: Spontaneous
  Country: US (occurrence: US)
  Receive Date: 20140303
  Receipt Date: 20140310
  Transmission Date: 20141002
  Serious: No
  Sender: FDA-Public Use
  Company Number: US-TEVA-465436USA

PATIENT
  Sex: Female

DRUGS (2)
  1. PROAIR HFA [Suspect]
     Indication: WHEEZING
  2. PROAIR HFA [Suspect]
     Indication: ASTHMA

REACTIONS (2)
  - Wheezing [Recovered/Resolved]
  - Drug ineffective [Unknown]
